FAERS Safety Report 11448801 (Version 2)
Quarter: 2015Q3

REPORT INFORMATION
  Report Type: Report from Study
  Country: US (occurrence: US)
  Receive Date: 20150902
  Receipt Date: 20150910
  Transmission Date: 20151125
  Serious: Yes (Hospitalization, Other)
  Sender: FDA-Public Use
  Company Number: US-ABBVIE-15K-163-1453374-00

PATIENT
  Age: 60 Year
  Sex: Female
  Weight: 71.28 kg

DRUGS (5)
  1. OMEPRAZOLE. [Concomitant]
     Active Substance: OMEPRAZOLE
     Indication: GASTROOESOPHAGEAL REFLUX DISEASE
  2. METHYLSCOPOLAMINE BROMIDE [Concomitant]
     Indication: CROHN^S DISEASE
  3. TOPAMAX [Concomitant]
     Active Substance: TOPIRAMATE
     Indication: COMPLEX REGIONAL PAIN SYNDROME
  4. DEXILANT [Concomitant]
     Active Substance: DEXLANSOPRAZOLE
     Indication: GASTROOESOPHAGEAL REFLUX DISEASE
  5. HUMIRA [Suspect]
     Active Substance: ADALIMUMAB
     Indication: CROHN^S DISEASE
     Route: 058
     Dates: start: 20141230, end: 201508

REACTIONS (14)
  - Fatigue [Not Recovered/Not Resolved]
  - Pulmonary mass [Not Recovered/Not Resolved]
  - Cough [Not Recovered/Not Resolved]
  - Faeces soft [Not Recovered/Not Resolved]
  - Carbon dioxide decreased [Unknown]
  - Blood creatinine increased [Unknown]
  - Abdominal pain [Not Recovered/Not Resolved]
  - Nasal septum deviation [Unknown]
  - Hepatic lesion [Unknown]
  - Blood potassium decreased [Unknown]
  - Interstitial lung disease [Unknown]
  - Dyspnoea [Recovering/Resolving]
  - Electrocardiogram abnormal [Recovered/Resolved]
  - Back pain [Not Recovered/Not Resolved]

NARRATIVE: CASE EVENT DATE: 2015
